FAERS Safety Report 15917366 (Version 3)
Quarter: 2025Q2

REPORT INFORMATION
  Report Type: Spontaneous
  Country: DE (occurrence: DE)
  Receive Date: 20190205
  Receipt Date: 20250425
  Transmission Date: 20250717
  Serious: Yes (Congenital Anomaly, Other)
  Sender: AUROBINDO
  Company Number: DE-AUROBINDO-AUR-APL-2019-005123

PATIENT
  Age: 34 Year
  Sex: Female

DRUGS (5)
  1. LEVETIRACETAM [Suspect]
     Active Substance: LEVETIRACETAM
     Indication: Product used for unknown indication
     Route: 064
     Dates: start: 20170607, end: 201712
  2. LEVETIRACETAM [Suspect]
     Active Substance: LEVETIRACETAM
     Route: 064
     Dates: start: 20171205, end: 201712
  3. LEVETIRACETAM [Suspect]
     Active Substance: LEVETIRACETAM
     Route: 064
     Dates: start: 20171213, end: 2018
  4. LEVETIRACETAM [Suspect]
     Active Substance: LEVETIRACETAM
     Route: 064
     Dates: start: 2018, end: 20180101
  5. VALPROATE SODIUM [Concomitant]
     Active Substance: VALPROATE SODIUM
     Indication: Epilepsy
     Route: 064
     Dates: end: 20170607

REACTIONS (6)
  - Anotia [Unknown]
  - Foetal exposure during pregnancy [Unknown]
  - Seizure [Not Recovered/Not Resolved]
  - Exposure during pregnancy [Unknown]
  - Overdose [Unknown]
  - Off label use [Unknown]

NARRATIVE: CASE EVENT DATE: 20170607
